FAERS Safety Report 16626697 (Version 1)
Quarter: 2019Q3

REPORT INFORMATION
  Report Type: Spontaneous
  Country: AU (occurrence: AU)
  Receive Date: 20190724
  Receipt Date: 20190724
  Transmission Date: 20191004
  Serious: Yes (Other)
  Sender: FDA-Public Use
  Company Number: AU-EISAI MEDICAL RESEARCH-EC-2019-059359

PATIENT
  Sex: Female

DRUGS (1)
  1. LENVIMA [Suspect]
     Active Substance: LENVATINIB
     Indication: HEPATOCELLULAR CARCINOMA
     Dosage: DOSE AND FREQUENCY UNKNOWN
     Route: 048
     Dates: start: 20190405, end: 2019

REACTIONS (5)
  - Frequent bowel movements [Unknown]
  - Product use issue [Unknown]
  - Fatigue [Unknown]
  - Hepatic failure [Unknown]
  - Wheezing [Unknown]

NARRATIVE: CASE EVENT DATE: 2019
